FAERS Safety Report 9064390 (Version 1)
Quarter: 2013Q1

REPORT INFORMATION
  Report Type: Spontaneous
  Country: AT (occurrence: AT)
  Receive Date: 20130213
  Receipt Date: 20130213
  Transmission Date: 20140127
  Serious: Yes (Other)
  Sender: FDA-Public Use
  Company Number: AT-PFIZER INC-2013054183

PATIENT
  Age: 22 Year
  Sex: Female

DRUGS (18)
  1. LYRICA [Suspect]
     Dosage: 150 MG, UNK
     Dates: start: 20120807, end: 20121127
  2. LYRICA [Suspect]
     Dosage: 350 MG, UNK
     Dates: start: 20121127, end: 20121128
  3. LYRICA [Suspect]
     Dosage: 450 MG, UNK
     Dates: start: 20121129, end: 20121130
  4. LYRICA [Suspect]
     Dosage: 600 MG, UNK
     Dates: start: 20121130
  5. CYMBALTA [Suspect]
     Dosage: 60 MG, UNK
     Dates: start: 20120807, end: 20121031
  6. CYMBALTA [Suspect]
     Dosage: 30 MG, UNK
     Dates: start: 20121031, end: 20121129
  7. CYMBALTA [Suspect]
     Dosage: 60 MG, UNK
     Dates: start: 20121130, end: 20121210
  8. CYMBALTA [Suspect]
     Dosage: 120 MG, UNK
     Dates: start: 20121211, end: 20121219
  9. CYMBALTA [Suspect]
     Dosage: 90 MG, UNK
     Dates: start: 20121219, end: 20121220
  10. CYMBALTA [Suspect]
     Dosage: 60 MG, UNK
     Dates: start: 20121220, end: 20121230
  11. TRITTICO [Suspect]
     Dosage: 50 MG, UNK
     Dates: start: 20121212, end: 20121213
  12. TRITTICO [Suspect]
     Dosage: 100 MG, UNK
     Dates: start: 20121213, end: 20121213
  13. TRITTICO [Suspect]
     Dosage: 75 MG, UNK
     Dates: start: 20121214, end: 20121220
  14. TRITTICO [Suspect]
     Dosage: 50 MG, UNK
     Dates: start: 20121221, end: 20121228
  15. TRITTICO [Suspect]
     Dosage: 25 MG, UNK
     Dates: start: 20121229
  16. RIVOTRIL [Suspect]
     Dosage: 2.5 MG, UNK
     Dates: start: 20120812, end: 20120910
  17. RIVOTRIL [Suspect]
     Dosage: 2 MG, UNK
     Dates: start: 20120911, end: 20120912
  18. RIVOTRIL [Suspect]
     Dosage: 1 MG, UNK
     Dates: start: 20120913

REACTIONS (1)
  - Micturition disorder [Recovered/Resolved]
